FAERS Safety Report 23681514 (Version 2)
Quarter: 2024Q2

REPORT INFORMATION
  Report Type: Report from Study
  Country: US (occurrence: US)
  Receive Date: 20240328
  Receipt Date: 20240418
  Transmission Date: 20240716
  Serious: Yes (Hospitalization)
  Sender: FDA-Public Use
  Company Number: US-TAKEDA-2024TUS021813

PATIENT
  Sex: Male
  Weight: 80.286 kg

DRUGS (1)
  1. IXAZOMIB [Suspect]
     Active Substance: IXAZOMIB
     Indication: Plasma cell myeloma
     Dosage: 3 MILLIGRAM
     Route: 048
     Dates: start: 20240212

REACTIONS (4)
  - Constipation [Unknown]
  - Malaise [Unknown]
  - Nausea [Unknown]
  - Product dose omission issue [Unknown]
